FAERS Safety Report 7691744-7 (Version None)
Quarter: 2011Q3

REPORT INFORMATION
  Report Type: 
  Country: None (occurrence: None)
  Receive Date: 20110818
  Receipt Date: 20110204
  Transmission Date: 20111222
  Serious: Yes (Other)
  Sender: FDA-Public Use
  Company Number: FR-GLAXOSMITHKLINE-B0698105A

PATIENT
  Sex: Male

DRUGS (1)
  1. ARIXTRA [Suspect]
     Indication: THROMBOSIS PROPHYLAXIS
     Dosage: 1INJ PER DAY
     Route: 058
     Dates: start: 20101231, end: 20110118

REACTIONS (3)
  - HAEMOGLOBIN DECREASED [None]
  - RENAL FAILURE [None]
  - MUSCLE HAEMORRHAGE [None]
